FAERS Safety Report 17883945 (Version 2)
Quarter: 2020Q3

REPORT INFORMATION
  Report Type: Spontaneous
  Country: CN (occurrence: CN)
  Receive Date: 20200611
  Receipt Date: 20200903
  Transmission Date: 20201103
  Serious: Yes (Other)
  Sender: FDA-Public Use
  Company Number: CN-PFIZER INC-2020223216

PATIENT
  Age: 41 Year
  Sex: Female

DRUGS (3)
  1. GIMERACIL/OTERACIL POTASSIUM/TEGAFUR [Suspect]
     Active Substance: GIMERACIL\OTERACIL\TEGAFUR
     Indication: METASTASES TO LIVER
     Dosage: 40 MG, CYCLIC (BID (D1?14) EVERY 21 DAYS)
  2. PACLITAXEL. [Suspect]
     Active Substance: PACLITAXEL
     Indication: METASTASES TO LIVER
     Dosage: 300 MG, CYCLIC (DAY1)
  3. PEMBROLIZUMAB. [Suspect]
     Active Substance: PEMBROLIZUMAB
     Indication: METASTASES TO LIVER
     Dosage: 200 MG, CYCLIC (DAY 2)

REACTIONS (4)
  - Cytomegalovirus infection [Unknown]
  - Febrile neutropenia [Unknown]
  - Hypothyroidism [Unknown]
  - Diarrhoea [Unknown]
